FAERS Safety Report 5781808-7 (Version None)
Quarter: 2008Q2

REPORT INFORMATION
  Report Type: 
  Country: None (occurrence: None)
  Receive Date: 20080623
  Receipt Date: 20080612
  Transmission Date: 20081010
  Serious: Yes (Other)
  Sender: FDA-Public Use
  Company Number: US-AVENTIS-200718370US

PATIENT
  Sex: Female

DRUGS (5)
  1. KETEK [Suspect]
     Indication: INFLUENZA
     Dosage: DOSE: ^400 MG INCREMENTS^
     Route: 048
     Dates: start: 20060101, end: 20060201
  2. KETEK [Suspect]
     Indication: RESPIRATORY TRACT INFECTION
     Dosage: DOSE: ^400 MG INCREMENTS^
     Route: 048
     Dates: start: 20060101, end: 20060201
  3. CHLORASEPTIC [Concomitant]
     Dosage: DOSE: UNK
     Dates: start: 20060101
  4. XOPONEX [Concomitant]
     Dosage: DOSE: UNK
     Dates: start: 20060101
  5. DEPO-MEDROL [Concomitant]
     Route: 030
     Dates: start: 20060101

REACTIONS (13)
  - ACARODERMATITIS [None]
  - ACTINIC KERATOSIS [None]
  - DIARRHOEA [None]
  - ECZEMA [None]
  - IMPETIGO [None]
  - KERATOACANTHOMA [None]
  - NEURODERMATITIS [None]
  - PRURIGO [None]
  - PRURITUS [None]
  - RASH [None]
  - SKIN BACTERIAL INFECTION [None]
  - SLEEP APNOEA SYNDROME [None]
  - SQUAMOUS CELL CARCINOMA [None]
